FAERS Safety Report 4390675-8 (Version None)
Quarter: 2004Q2

REPORT INFORMATION
  Report Type: 
  Country: None (occurrence: None)
  Receive Date: 20040630
  Receipt Date: 20040618
  Transmission Date: 20050107
  Serious: Yes (Hospitalization, Other)
  Sender: FDA-Public Use
  Company Number: 2004041466

PATIENT
  Age: 17 Year
  Sex: Male

DRUGS (2)
  1. GEODON [Suspect]
     Indication: SCHIZOAFFECTIVE DISORDER
     Dosage: 80 MG (40 MG, 2 IN 1 D),
     Dates: start: 20040101
  2. LORAZEPAM [Concomitant]

REACTIONS (2)
  - MUSCULOSKELETAL STIFFNESS [None]
  - NEUROLEPTIC MALIGNANT SYNDROME [None]
